FAERS Safety Report 20534349 (Version 1)
Quarter: 2022Q1

REPORT INFORMATION
  Report Type: Report from Study
  Country: PL (occurrence: None)
  Receive Date: 20220302
  Receipt Date: 20220302
  Transmission Date: 20220424
  Serious: Yes (Hospitalization)
  Sender: FDA-Public Use
  Company Number: PL-ROCHE-3035484

PATIENT
  Age: 43 Year
  Sex: Female
  Weight: 120 kg

DRUGS (1)
  1. ENTRECTINIB [Suspect]
     Active Substance: ENTRECTINIB
     Indication: Neoplasm
     Dosage: ON 05/SEP/2021, ADMINISTERED WITH LAST DOSE PRIOR TO ADVERSE EVENT.
     Route: 048
     Dates: start: 20191030

REACTIONS (1)
  - Hepatic failure [Recovered/Resolved]

NARRATIVE: CASE EVENT DATE: 20210906
